FAERS Safety Report 5324985-4 (Version None)
Quarter: 2007Q2

REPORT INFORMATION
  Report Type: 
  Country: None (occurrence: None)
  Receive Date: 20070515
  Receipt Date: 20070504
  Transmission Date: 20071010
  Serious: Yes (Life-Threatening)
  Sender: FDA-Public Use
  Company Number: AU-BRISTOL-MYERS SQUIBB COMPANY-13776687

PATIENT
  Age: 60 Year
  Sex: Female

DRUGS (9)
  1. IRBESARTAN + HYDROCHLOROTHIAZIDE [Suspect]
     Dosage: DOSAGE FORM = 300/1.25
     Route: 048
     Dates: end: 20060328
  2. METFORMIN HCL [Suspect]
     Route: 048
     Dates: end: 20060322
  3. GEMFIBROZIL [Suspect]
     Route: 048
     Dates: end: 20060328
  4. RAMIPRIL [Suspect]
     Route: 048
     Dates: end: 20060328
  5. GLICLAZIDE [Suspect]
     Route: 048
     Dates: end: 20060322
  6. ESOMEPRAZOLE MAGNESIUM TRIHYDRATE [Suspect]
  7. ASPIRIN [Suspect]
  8. AMLODIPINE [Concomitant]
     Route: 048
  9. CALTRATE [Concomitant]
     Route: 048

REACTIONS (6)
  - ANOREXIA [None]
  - HYPERKALAEMIA [None]
  - MALAISE [None]
  - RENAL FAILURE ACUTE [None]
  - RETCHING [None]
  - VOMITING [None]
